FAERS Safety Report 7576953-X (Version None)
Quarter: 2011Q2

REPORT INFORMATION
  Report Type: 
  Country: None (occurrence: None)
  Receive Date: 20110628
  Receipt Date: 20100511
  Transmission Date: 20111010
  Serious: Yes (Death, Hospitalization, Disabling, Other)
  Sender: FDA-Public Use
  Company Number: CN-BAYER-200943950GPV

PATIENT
  Age: 66 Year
  Sex: Female
  Weight: 52 kg

DRUGS (20)
  1. SODIUM BICARBONATE [Concomitant]
     Indication: HYPOCAPNIA
     Dosage: 60 ML (DAILY DOSE), ,
     Dates: start: 20091129, end: 20091129
  2. GLUCOSE [Concomitant]
     Dosage: 10%
     Dates: start: 20091201, end: 20091201
  3. GLUCOSE W/SODIUM CHLORIDE [Concomitant]
     Indication: FLUID REPLACEMENT
     Dosage: 500 ML (DAILY DOSE), ,
     Dates: start: 20091129, end: 20091129
  4. INSULIN [Concomitant]
     Indication: PROPHYLAXIS
     Dates: start: 20091129, end: 20091130
  5. FU FANG KU SHEN [Concomitant]
     Indication: HEPATIC NEOPLASM MALIGNANT
     Dosage: 10 ML (DAILY DOSE), ,
     Dates: start: 20091129, end: 20091201
  6. SODIUM CHLORIDE [Concomitant]
     Indication: FLUID REPLACEMENT
     Dosage: 350 ML (DAILY DOSE), ,
     Dates: start: 20091129, end: 20091201
  7. SORAFENIB (RAF KINASE INHIBITOR) [Suspect]
     Indication: HEPATIC NEOPLASM MALIGNANT
     Dosage: 400 MG, BID
     Route: 048
     Dates: start: 20091120, end: 20091127
  8. HUMAN INSULIN [Concomitant]
     Indication: PROPHYLAXIS
     Dosage: 8 U (DAILY DOSE), ,
     Dates: start: 20091129, end: 20091129
  9. HERBAL PREPARATION [Concomitant]
     Indication: HEPATIC NEOPLASM MALIGNANT
  10. PLACEBO [Suspect]
     Indication: HEPATIC NEOPLASM MALIGNANT
     Dosage: 150 MG (DAILY DOSE)
     Route: 048
     Dates: start: 20091120, end: 20091127
  11. RESERPINE [Concomitant]
     Indication: HYPERTENSION
     Dosage: 2 #
     Route: 048
     Dates: start: 20081101
  12. GLUCOSE [Concomitant]
     Dosage: 10%
     Dates: start: 20091129, end: 20091130
  13. GLUCOSE [Concomitant]
     Dosage: 5%
     Dates: start: 20091130, end: 20091130
  14. HUMAN INSULIN [Concomitant]
     Dosage: 24 U (DAILY DOSE), ,
     Dates: start: 20091130, end: 20091130
  15. CALCIUM GLUCONATE [Concomitant]
     Dosage: 20 ML (DAILY DOSE), ,
     Dates: start: 20091130
  16. GLUCOSE [Concomitant]
     Dosage: 5%
     Dates: start: 20091129, end: 20091201
  17. OXYGEN [Concomitant]
     Indication: PROPHYLAXIS
     Dates: start: 20091129, end: 20091201
  18. GLUCOSE [Concomitant]
     Dosage: 10%
     Dates: start: 20091130, end: 20091130
  19. GLUCOSE [Concomitant]
     Dosage: 50%
     Dates: start: 20091129, end: 20091129
  20. PLASMA [Concomitant]
     Indication: HAEMOGLOBIN DECREASED
     Dosage: 200 ML (DAILY DOSE), ,
     Dates: start: 20091130, end: 20091130

REACTIONS (2)
  - ACUTE HEPATIC FAILURE [None]
  - RENAL FAILURE ACUTE [None]
